FAERS Safety Report 9348851 (Version 2)
Quarter: 2013Q3

REPORT INFORMATION
  Report Type: Spontaneous
  Country: FR (occurrence: FR)
  Receive Date: 20130614
  Receipt Date: 20130710
  Transmission Date: 20140515
  Serious: Yes (Hospitalization)
  Sender: FDA-Public Use
  Company Number: FR-TEVA-412404ISR

PATIENT
  Sex: Female

DRUGS (1)
  1. FUROSEMIDE TEVA [Suspect]
     Indication: OEDEMA
     Dosage: 2 TABLET DAILY;

REACTIONS (3)
  - Somnolence [Recovered/Resolved]
  - Pulmonary oedema [Recovered/Resolved]
  - Oedema peripheral [Recovered/Resolved]
